FAERS Safety Report 24313196 (Version 2)
Quarter: 2024Q3

REPORT INFORMATION
  Report Type: Spontaneous
  Country: US (occurrence: US)
  Receive Date: 20240912
  Receipt Date: 20240920
  Transmission Date: 20241017
  Serious: No
  Sender: TAKEDA
  Company Number: US-TAKEDA-2024TUS090605

PATIENT

DRUGS (2)
  1. GAMMAGARD S/D [Suspect]
     Active Substance: HUMAN IMMUNOGLOBULIN G
     Indication: Blood immunoglobulin G decreased
     Dosage: 400 MILLILITER
     Route: 065
  2. GAMMAGARD S/D [Suspect]
     Active Substance: HUMAN IMMUNOGLOBULIN G
     Indication: Blood immunoglobulin G decreased
     Dosage: 400 MILLILITER
     Route: 065

REACTIONS (4)
  - Incorrect dose administered [Unknown]
  - Allergic reaction to excipient [Unknown]
  - Dyspnoea [Unknown]
  - Chills [Unknown]
